FAERS Safety Report 10075977 (Version 1)
Quarter: 2014Q2

REPORT INFORMATION
  Report Type: Spontaneous
  Country: US (occurrence: None)
  Receive Date: 20140411
  Receipt Date: 20140411
  Transmission Date: 20141212
  Serious: Yes (Other)
  Sender: FDA-Public Use
  Company Number: None

PATIENT
  Age: 87 Year
  Sex: Male
  Weight: 58.97 kg

DRUGS (3)
  1. REMERON [Suspect]
     Indication: WEIGHT DECREASED
     Dosage: 1 PILL ONCE A DAY BY MOUTH
     Route: 048
     Dates: start: 20140318, end: 20140322
  2. UROXATROL [Concomitant]
  3. NORVASC [Concomitant]

REACTIONS (4)
  - Confusional state [None]
  - Tremor [None]
  - Hallucination [None]
  - Abnormal behaviour [None]
